FAERS Safety Report 7272590-5 (Version None)
Quarter: 2011Q1

REPORT INFORMATION
  Report Type: 
  Country: None (occurrence: None)
  Receive Date: 20110131
  Receipt Date: 20110131
  Transmission Date: 20110831
  Serious: Yes (Hospitalization, Other)
  Sender: FDA-Public Use
  Company Number: None

PATIENT
  Sex: Male
  Weight: 44.4 kg

DRUGS (1)
  1. MERCAPTOPURINE [Suspect]
     Indication: CROHN'S DISEASE
     Dosage: 50 MG DAILY PO
     Route: 048
     Dates: start: 20101026, end: 20101124

REACTIONS (7)
  - PANCREATITIS [None]
  - CROHN'S DISEASE [None]
  - WEIGHT DECREASED [None]
  - NAUSEA [None]
  - CONDITION AGGRAVATED [None]
  - RED BLOOD CELL SEDIMENTATION RATE INCREASED [None]
  - LIPASE INCREASED [None]
